FAERS Safety Report 4808890-5 (Version None)
Quarter: 2005Q4

REPORT INFORMATION
  Report Type: 
  Country: None (occurrence: None)
  Receive Date: 20051025
  Receipt Date: 20051021
  Transmission Date: 20060501
  Serious: Yes (Other)
  Sender: FDA-Public Use
  Company Number: US-JNJFOC-20050803930

PATIENT
  Sex: Male
  Weight: 68.95 kg

DRUGS (4)
  1. LEVAQUIN [Suspect]
     Route: 048
     Dates: start: 20050801
  2. SUDAFED 12 HOUR [Concomitant]
  3. PHENERGAN DM [Concomitant]
  4. PHENERGAN DM [Concomitant]

REACTIONS (7)
  - ARTHRALGIA [None]
  - MUSCLE ATROPHY [None]
  - MUSCULAR WEAKNESS [None]
  - MYALGIA [None]
  - NEUROPATHY PERIPHERAL [None]
  - PARAESTHESIA [None]
  - TENDON DISORDER [None]
